FAERS Safety Report 13450166 (Version 1)
Quarter: 2017Q2

REPORT INFORMATION
  Report Type: Spontaneous
  Country: US (occurrence: US)
  Receive Date: 20170417
  Receipt Date: 20170417
  Transmission Date: 20170830
  Serious: No
  Sender: FDA-Public Use
  Company Number: US-BION-20160386

PATIENT
  Age: 85 Year
  Sex: Male
  Weight: 54.42 kg

DRUGS (3)
  1. ALEVE TENS DEVICE DIRECT THERAPY UNIT [Suspect]
     Active Substance: DEVICE
     Indication: BACK PAIN
     Dosage: 1 DF PRN
     Dates: start: 20160802, end: 20160808
  2. ALEVE CAPLETS [Suspect]
     Active Substance: NAPROXEN SODIUM
     Indication: BACK PAIN
     Dosage: 2 DF ONCE
  3. ALEVE [Suspect]
     Active Substance: NAPROXEN SODIUM
     Indication: BACK PAIN
     Dosage: 2 DF QD
     Route: 048
     Dates: start: 2015, end: 2015

REACTIONS (2)
  - Inappropriate schedule of drug administration [Unknown]
  - Drug ineffective [Unknown]
